FAERS Safety Report 4473082-9 (Version None)
Quarter: 2004Q4

REPORT INFORMATION
  Report Type: 
  Country: None (occurrence: None)
  Receive Date: 20041013
  Receipt Date: 20040913
  Transmission Date: 20050328
  Serious: Yes (Other)
  Sender: FDA-Public Use
  Company Number: PHEH2004US09879

PATIENT

DRUGS (1)
  1. RITALIN LA [Suspect]

REACTIONS (1)
  - HALLUCINATION, AUDITORY [None]
